FAERS Safety Report 13897396 (Version 2)
Quarter: 2017Q3

REPORT INFORMATION
  Report Type: Report from Study
  Country: JP (occurrence: JP)
  Receive Date: 20170823
  Receipt Date: 20170913
  Transmission Date: 20171127
  Serious: Yes (Hospitalization, Other)
  Sender: FDA-Public Use
  Company Number: JP-ASTRAZENECA-2017SE36279

PATIENT
  Age: 65 Year
  Sex: Female
  Weight: 53 kg

DRUGS (4)
  1. LYRICA [Concomitant]
     Active Substance: PREGABALIN
     Dosage: DOSE UNKNOWN
     Route: 048
  2. TAGRISSO [Suspect]
     Active Substance: OSIMERTINIB
     Indication: NON-SMALL CELL LUNG CANCER
     Route: 048
     Dates: start: 20161005, end: 20170404
  3. TAGRISSO [Suspect]
     Active Substance: OSIMERTINIB
     Indication: NON-SMALL CELL LUNG CANCER
     Dosage: 40 MILLIGRAMS EVERY OTHER DAY
     Route: 048
     Dates: start: 20170405, end: 20170524
  4. TRAMCET [Concomitant]
     Active Substance: ACETAMINOPHEN\TRAMADOL
     Dosage: DOSE UNKNOWN
     Route: 048

REACTIONS (6)
  - Skin disorder [Unknown]
  - Altered state of consciousness [Unknown]
  - Dysarthria [Unknown]
  - Metastases to central nervous system [Unknown]
  - Insomnia [Unknown]
  - Headache [Not Recovered/Not Resolved]

NARRATIVE: CASE EVENT DATE: 20170222
